FAERS Safety Report 5269208-X (Version None)
Quarter: 2007Q1

REPORT INFORMATION
  Report Type: 
  Country: None (occurrence: None)
  Receive Date: 20070319
  Receipt Date: 20070314
  Transmission Date: 20070707
  Serious: Yes (Hospitalization)
  Sender: FDA-Public Use
  Company Number: US-MERCK-0701USA01298

PATIENT
  Age: 61 Year
  Sex: Female

DRUGS (8)
  1. PRINIVIL [Suspect]
     Indication: CORONARY ARTERY DISEASE
     Route: 048
     Dates: start: 19950101, end: 20061119
  2. TOPROL-XL [Concomitant]
     Route: 065
  3. MONOCAL [Concomitant]
     Route: 065
  4. LASIX [Concomitant]
     Route: 065
  5. INSULIN [Concomitant]
     Route: 065
  6. INSULIN [Concomitant]
     Route: 065
  7. CIPRO [Concomitant]
     Route: 048
  8. VICODIN [Concomitant]
     Indication: PAIN
     Route: 048

REACTIONS (1)
  - ANGIOEDEMA [None]
